FAERS Safety Report 14525001 (Version 1)
Quarter: 2018Q1

REPORT INFORMATION
  Report Type: Spontaneous
  Country: US (occurrence: US)
  Receive Date: 20180210
  Receipt Date: 20180210
  Transmission Date: 20180509
  Serious: No
  Sender: FDA-Public Use
  Company Number: None

PATIENT
  Age: 41 Year
  Sex: Female

DRUGS (1)
  1. COPAXONE [Suspect]
     Active Substance: GLATIRAMER ACETATE

REACTIONS (7)
  - Visual impairment [None]
  - Fatigue [None]
  - Muscle spasticity [None]
  - Hypoaesthesia [None]
  - Depression [None]
  - Multiple sclerosis [None]
  - Paraesthesia [None]

NARRATIVE: CASE EVENT DATE: 20180210
